FAERS Safety Report 18498729 (Version 1)
Quarter: 2020Q4

REPORT INFORMATION
  Report Type: Other
  Country: TR (occurrence: TR)
  Receive Date: 20201113
  Receipt Date: 20201113
  Transmission Date: 20210114
  Serious: Yes (Death)
  Sender: FDA-Public Use
  Company Number: TR-ROCHE-2699654

PATIENT
  Sex: Male
  Weight: 70 kg

DRUGS (2)
  1. ATEZOLIZUMAB. [Suspect]
     Active Substance: ATEZOLIZUMAB
     Indication: HEPATOCELLULAR CARCINOMA
     Route: 042
     Dates: start: 20200928
  2. BEVACIZUMAB. [Suspect]
     Active Substance: BEVACIZUMAB
     Indication: HEPATOCELLULAR CARCINOMA
     Route: 042
     Dates: start: 20200928

REACTIONS (4)
  - Hepatic failure [Fatal]
  - Electrocardiogram abnormal [Fatal]
  - Ascites [Fatal]
  - Abdominal pain [Fatal]

NARRATIVE: CASE EVENT DATE: 20201016
